FAERS Safety Report 8862095 (Version 1)
Quarter: 2012Q4

REPORT INFORMATION
  Report Type: 
  Country: US (occurrence: US)
  Receive Date: 20121026
  Receipt Date: 20121026
  Transmission Date: 20130627
  Serious: No
  Sender: FDA-Public Use
  Company Number: US-PFIZER INC-2012265288

PATIENT

DRUGS (1)
  1. SUTENT [Suspect]
     Indication: METASTATIC RENAL CELL CARCINOMA
     Dosage: UNK, Cyclic (4 week cycle)

REACTIONS (3)
  - Discomfort [Unknown]
  - Pain [Recovered/Resolved]
  - Skin lesion [Recovering/Resolving]
